FAERS Safety Report 5315114-1 (Version None)
Quarter: 2007Q2

REPORT INFORMATION
  Report Type: 
  Country: None (occurrence: None)
  Receive Date: 20070502
  Receipt Date: 20070419
  Transmission Date: 20071010
  Serious: Yes (Other)
  Sender: FDA-Public Use
  Company Number: US-PFIZER INC-2007014049

PATIENT
  Sex: Female
  Weight: 43.5 kg

DRUGS (2)
  1. CEREBYX [Suspect]
     Indication: GRAND MAL CONVULSION
     Route: 042
     Dates: start: 20070215, end: 20070215
  2. DDAVP (NEEDS NO REFRIGERATION) [Concomitant]
     Indication: ENURESIS

REACTIONS (3)
  - ANTICONVULSANT DRUG LEVEL ABOVE THERAPEUTIC [None]
  - DIABETES INSIPIDUS [None]
  - HYPERNATRAEMIA [None]
